FAERS Safety Report 9236954 (Version 2)
Quarter: 2013Q2

REPORT INFORMATION
  Report Type: Spontaneous
  Country: CA (occurrence: CA)
  Receive Date: 20130417
  Receipt Date: 20130424
  Transmission Date: 20140414
  Serious: Yes (Hospitalization, Other)
  Sender: FDA-Public Use
  Company Number: CA-ASTRAZENECA-2013SE24485

PATIENT
  Age: 67 Year
  Sex: Male
  Weight: 81.6 kg

DRUGS (24)
  1. SEROQUEL [Suspect]
     Route: 048
     Dates: start: 2011
  2. SEROQUEL [Suspect]
     Dosage: PRN
     Route: 048
  3. SEROQUEL [Suspect]
     Route: 048
     Dates: start: 201210
  4. SEROQUEL [Suspect]
     Dosage: 25 MG, 1 TABLET IN THE MORNING AND WITH DINNER + 300 MG, 1 TABLET ONCE A DAY AT BEDTIME
     Route: 048
  5. PMS-DOCUSATE SODIUM [Concomitant]
     Indication: CONSTIPATION
  6. METFORMIN [Concomitant]
     Dosage: 1.5 TABLET (750 MG), ONCE A DAY WITH BREAKFAST
     Dates: start: 20130305
  7. LIPITOR [Concomitant]
     Indication: BLOOD CHOLESTEROL ABNORMAL
     Dates: start: 20130219
  8. FOSAMAX [Concomitant]
     Dosage: 1 TABLET ONCE A WEEK ON SATURDAY SEPARATE POUCH
     Dates: start: 20130130
  9. PHARMA-CAL D [Concomitant]
     Indication: BONE DISORDER
     Dosage: 400 IU + 500 MG, TAKE 1 TABLET TWICE A DAY WITH BREAKFAST AND DINNER
     Dates: start: 20130130
  10. PANTOPRAZOLE [Concomitant]
     Dates: start: 20121113
  11. EURO-FOLIC [Concomitant]
     Dates: start: 20121107
  12. VITAMIN B1 [Concomitant]
     Dates: start: 20121113
  13. ZYLOPRIM [Concomitant]
     Dosage: 1 TABLET ONCE A DAY WITH BREAKFAST
     Dates: start: 20121107
  14. ACETAMINOPHEN E [Concomitant]
     Indication: PAIN
     Dosage: 1 TABLET 4 TIMES A DAY AS REQUIRED
     Dates: start: 20130130
  15. ACETAMINOPHEN E [Concomitant]
     Indication: PYREXIA
     Dosage: 1 TABLET 4 TIMES A DAY AS REQUIRED
     Dates: start: 20130130
  16. TRAZODONE [Concomitant]
     Dates: start: 20130403
  17. RESOTRIL [Concomitant]
     Dates: start: 20130326
  18. BETADERM [Concomitant]
     Dosage: 0.05 PERCENT, APPLY A THIN LAYER LOCALLY TWICE A DAY MORNING AND EVENING
     Route: 061
     Dates: start: 20130118
  19. CITALOPRAM [Concomitant]
     Dates: start: 201211, end: 201212
  20. GABAPENTIN [Concomitant]
     Dates: start: 20121121, end: 20121127
  21. TYLENOL [Concomitant]
     Dosage: PRN
  22. HALDOL+ATIVAN [Concomitant]
  23. GOUDRON SHAM [Concomitant]
  24. VENLAFAXINE [Concomitant]
     Dates: start: 201304

REACTIONS (3)
  - Chronic obstructive pulmonary disease [Unknown]
  - Cardiac disorder [Unknown]
  - Weight increased [Unknown]
